FAERS Safety Report 21016942 (Version 1)
Quarter: 2022Q2

REPORT INFORMATION
  Report Type: Spontaneous
  Country: DE (occurrence: DE)
  Receive Date: 20220628
  Receipt Date: 20220628
  Transmission Date: 20220720
  Serious: Yes (Other)
  Sender: FDA-Public Use
  Company Number: None

PATIENT
  Sex: Female

DRUGS (2)
  1. CYTOTEC [Suspect]
     Active Substance: MISOPROSTOL
     Indication: Labour induction
     Dosage: UNK
     Dates: start: 200812
  2. AMOXICILLIN [Concomitant]
     Active Substance: AMOXICILLIN
     Dosage: UNK
     Route: 042

REACTIONS (9)
  - Birth trauma [Not Recovered/Not Resolved]
  - Shock [Not Recovered/Not Resolved]
  - Uterine tachysystole [Not Recovered/Not Resolved]
  - Insomnia [Unknown]
  - Screaming [Unknown]
  - Pain [Unknown]
  - Decreased immune responsiveness [Unknown]
  - Irritability [Unknown]
  - Off label use [Unknown]

NARRATIVE: CASE EVENT DATE: 20080101
